FAERS Safety Report 16759715 (Version 2)
Quarter: 2019Q3

REPORT INFORMATION
  Report Type: Spontaneous
  Country: JP (occurrence: JP)
  Receive Date: 20190830
  Receipt Date: 20190919
  Transmission Date: 20191005
  Serious: Yes (Hospitalization, Other)
  Sender: FDA-Public Use
  Company Number: JP-BAYER-2019-153784

PATIENT
  Age: 52 Year
  Sex: Female

DRUGS (5)
  1. STIVARGA [Suspect]
     Active Substance: REGORAFENIB
     Indication: RECTAL CANCER STAGE III
     Dosage: DAILY DOSE 160 MG, ON FOR 3 WEEKS AND 1 WEEK OFF
     Route: 048
     Dates: start: 20190709, end: 20190714
  2. METHAPAIN [Concomitant]
     Active Substance: METHADONE HYDROCHLORIDE
  3. FENTOS [Concomitant]
     Active Substance: FENTANYL
     Dosage: UNK
     Dates: start: 201803
  4. STIVARGA [Suspect]
     Active Substance: REGORAFENIB
     Indication: RECTAL CANCER STAGE III
     Dosage: DAILY DOSE 160 MG, ON FOR 3 WEEKS AND 1 WEEK OFF
     Route: 048
     Dates: start: 20190618, end: 20190624
  5. STIVARGA [Suspect]
     Active Substance: REGORAFENIB
     Indication: RECTAL CANCER STAGE III
     Dosage: DAILY DOSE 80 MG, ON FOR 3 WEEKS AND 1 WEEK OFF
     Route: 048
     Dates: start: 20190723, end: 20190729

REACTIONS (9)
  - Labelled drug-drug interaction medication error [None]
  - Blood bilirubin increased [Not Recovered/Not Resolved]
  - Acute hepatic failure [Not Recovered/Not Resolved]
  - Aspartate aminotransferase increased [Not Recovered/Not Resolved]
  - International normalised ratio abnormal [Not Recovered/Not Resolved]
  - Rash [Recovered/Resolved]
  - Hepatitis fulminant [Not Recovered/Not Resolved]
  - Ammonia increased [Recovered/Resolved]
  - Alanine aminotransferase increased [Not Recovered/Not Resolved]

NARRATIVE: CASE EVENT DATE: 20190625
